FAERS Safety Report 13760674 (Version 2)
Quarter: 2017Q3

REPORT INFORMATION
  Report Type: Report from Study
  Country: US (occurrence: US)
  Receive Date: 20170717
  Receipt Date: 20170804
  Transmission Date: 20171127
  Serious: No
  Sender: FDA-Public Use
  Company Number: US-AMGEN-USASP2017105852

PATIENT
  Age: 34 Year
  Sex: Female

DRUGS (1)
  1. ENBREL [Suspect]
     Active Substance: ETANERCEPT
     Indication: ARTHRALGIA
     Dosage: 50 MG, QWK
     Route: 058
     Dates: start: 20170707, end: 20170723

REACTIONS (9)
  - Dizziness [Unknown]
  - Myalgia [Unknown]
  - Disorientation [Unknown]
  - Hypoaesthesia [Unknown]
  - Off label use [Unknown]
  - Arthralgia [Unknown]
  - Muscle spasms [Unknown]
  - Muscle twitching [Unknown]
  - Paraesthesia [Unknown]

NARRATIVE: CASE EVENT DATE: 201707
